FAERS Safety Report 17651857 (Version 1)
Quarter: 2020Q2

REPORT INFORMATION
  Report Type: Report from Study
  Country: US (occurrence: US)
  Receive Date: 20200409
  Receipt Date: 20200409
  Transmission Date: 20200713
  Serious: No
  Sender: FDA-Public Use
  Company Number: NVSC2020US093903

PATIENT
  Age: 61 Year
  Sex: Female

DRUGS (1)
  1. ENTRESTO [Suspect]
     Active Substance: SACUBITRIL\VALSARTAN
     Indication: INTRACARDIAC THROMBUS
     Dosage: 24/26 MG
     Route: 048

REACTIONS (6)
  - Hypersensitivity [Unknown]
  - Wrong technique in product usage process [Unknown]
  - Blood pressure decreased [Unknown]
  - Renal disorder [Unknown]
  - Product prescribing error [Unknown]
  - Movement disorder [Unknown]

NARRATIVE: CASE EVENT DATE: 20190315
